FAERS Safety Report 17857133 (Version 2)
Quarter: 2020Q2

REPORT INFORMATION
  Report Type: Spontaneous
  Country: DE (occurrence: DE)
  Receive Date: 20200603
  Receipt Date: 20200617
  Transmission Date: 20200714
  Serious: Yes (Death, Hospitalization)
  Sender: FDA-Public Use
  Company Number: DE-BAUSCH-BL-2020-015955

PATIENT
  Age: 38 Year
  Sex: Female

DRUGS (4)
  1. FENTANYL. [Suspect]
     Active Substance: FENTANYL
     Dosage: CUMULATIVE DOSE OF 419 MICROG/H
     Route: 061
  2. METOPROLOL SUCCINATE. [Suspect]
     Active Substance: METOPROLOL SUCCINATE
     Indication: HYPERTENSION
     Dosage: TOTAL CUMULATIVE DOSE OF 10.5 G METOPROLOL SUCCINATE
     Route: 048
  3. FENTANYL. [Suspect]
     Active Substance: FENTANYL
     Indication: SUICIDE ATTEMPT
     Dosage: CUMULATIVE DOSE OF 419 MICROG/H
     Route: 061
  4. LORAZEPAM. [Suspect]
     Active Substance: LORAZEPAM
     Indication: SUICIDE ATTEMPT
     Dosage: TOTAL CUMULATIVE DOSE OF 50 MG
     Route: 048

REACTIONS (3)
  - Completed suicide [Fatal]
  - Respiratory failure [Unknown]
  - Toxicity to various agents [Fatal]
